FAERS Safety Report 6302212-9 (Version None)
Quarter: 2009Q3

REPORT INFORMATION
  Report Type: 
  Country: None (occurrence: None)
  Receive Date: 20090810
  Receipt Date: 20090805
  Transmission Date: 20100115
  Serious: Yes (Hospitalization)
  Sender: FDA-Public Use
  Company Number: US-BIOGENIDEC-2008BI013645

PATIENT
  Age: 52 Year
  Sex: Female
  Weight: 70 kg

DRUGS (3)
  1. AVONEX [Suspect]
     Indication: MULTIPLE SCLEROSIS
     Route: 030
     Dates: start: 19990701, end: 20040101
  2. AVONEX [Suspect]
     Route: 030
     Dates: start: 20040101
  3. ACETAMINOPHEN [Concomitant]
     Indication: PREMEDICATION

REACTIONS (12)
  - DEPRESSION [None]
  - EAR INFECTION [None]
  - FATIGUE [None]
  - GASTROINTESTINAL DISORDER [None]
  - INFLUENZA LIKE ILLNESS [None]
  - INJECTION SITE PAIN [None]
  - MASTOIDITIS [None]
  - MULTIPLE SCLEROSIS [None]
  - MULTIPLE SCLEROSIS RELAPSE [None]
  - NERVOUSNESS [None]
  - NEUROGENIC BLADDER [None]
  - OPTIC NEURITIS [None]
